FAERS Safety Report 12103880 (Version 2)
Quarter: 2016Q2

REPORT INFORMATION
  Report Type: Spontaneous
  Country: US (occurrence: US)
  Receive Date: 20160223
  Receipt Date: 20160504
  Transmission Date: 20160815
  Serious: Yes (Hospitalization)
  Sender: FDA-Public Use
  Company Number: US-BEH-2016058860

PATIENT
  Age: 20 Year
  Sex: Female
  Weight: 51 kg

DRUGS (25)
  1. GILDESS [Concomitant]
     Active Substance: ETHINYL ESTRADIOL\NORETHINDRONE ACETATE
  2. CLOTRIMAZOLE. [Concomitant]
     Active Substance: CLOTRIMAZOLE
  3. AUGMENTIN [Concomitant]
     Active Substance: AMOXICILLIN\CLAVULANATE POTASSIUM
  4. DEXTROSE. [Concomitant]
     Active Substance: DEXTROSE
  5. SODIUM CHLORIDE. [Concomitant]
     Active Substance: SODIUM CHLORIDE
  6. CYPROHEPTADINE. [Concomitant]
     Active Substance: CYPROHEPTADINE
  7. TOBI [Concomitant]
     Active Substance: TOBRAMYCIN
  8. PULMOZYME [Concomitant]
     Active Substance: DORNASE ALFA
  9. ZOLOFT [Concomitant]
     Active Substance: SERTRALINE HYDROCHLORIDE
  10. SALINE MOISTURIZING MIST [Concomitant]
  11. NASONEX [Concomitant]
     Active Substance: MOMETASONE FUROATE
  12. SINGULAIR [Concomitant]
     Active Substance: MONTELUKAST SODIUM
  13. LIDOCAINE/PRILOCAINE [Concomitant]
  14. MUPIROCIN. [Concomitant]
     Active Substance: MUPIROCIN
  15. PRIVIGEN [Suspect]
     Active Substance: HUMAN IMMUNOGLOBULIN G
     Dosage: 5 GM VIALS
     Route: 042
  16. PRIVIGEN [Suspect]
     Active Substance: HUMAN IMMUNOGLOBULIN G
     Indication: IMMUNODEFICIENCY COMMON VARIABLE
     Dosage: 20 GM VIALS
     Route: 042
  17. MAXAIR [Concomitant]
     Active Substance: PIRBUTEROL ACETATE
  18. TOPAMAX [Concomitant]
     Active Substance: TOPIRAMATE
  19. XOPENEX [Concomitant]
     Active Substance: LEVALBUTEROL HYDROCHLORIDE
  20. ACETAMINOPHEN. [Concomitant]
     Active Substance: ACETAMINOPHEN
  21. DIPHENHYDRAMINE. [Concomitant]
     Active Substance: DIPHENHYDRAMINE
  22. HYDROCORTISONE - ALOE [Concomitant]
  23. PEPCID [Concomitant]
     Active Substance: FAMOTIDINE
  24. EPINEPHRINE. [Concomitant]
     Active Substance: EPINEPHRINE
  25. FIORICET [Concomitant]
     Active Substance: ACETAMINOPHEN\BUTALBITAL\CAFFEINE

REACTIONS (1)
  - Herpes zoster [Recovered/Resolved]

NARRATIVE: CASE EVENT DATE: 20160202
